FAERS Safety Report 8044600-9 (Version None)
Quarter: 2012Q1

REPORT INFORMATION
  Report Type: 
  Country: None (occurrence: None)
  Receive Date: 20120113
  Receipt Date: 20120113
  Transmission Date: 20120608
  Serious: Yes (Death)
  Sender: FDA-Public Use
  Company Number: None

PATIENT
  Age: 81 Year
  Sex: Female
  Weight: 58.967 kg

DRUGS (1)
  1. AMIODARONE, GENERIC FOR PACERONE [Suspect]
     Indication: ATRIAL FIBRILLATION
     Dosage: 1/2 TABLET
     Route: 048
     Dates: start: 20010101, end: 20111001

REACTIONS (8)
  - BACK PAIN [None]
  - PNEUMONIA [None]
  - COUGH [None]
  - DIFFUSE ALVEOLAR DAMAGE [None]
  - FATIGUE [None]
  - GENERAL PHYSICAL CONDITION ABNORMAL [None]
  - PNEUMONITIS [None]
  - BRONCHITIS CHRONIC [None]
